FAERS Safety Report 4309949-1 (Version None)
Quarter: 2004Q1

REPORT INFORMATION
  Report Type: 
  Country: None (occurrence: None)
  Receive Date: 20040303
  Receipt Date: 20040223
  Transmission Date: 20041129
  Serious: Yes (Other)
  Sender: FDA-Public Use
  Company Number: US-BRISTOL-MYERS SQUIBB COMPANY-12515789

PATIENT
  Sex: Female

DRUGS (17)
  1. SERZONE [Suspect]
     Route: 048
     Dates: start: 19960101, end: 20020301
  2. BECONASE AQ [Concomitant]
  3. PROMETHAZINE + CODEINE [Concomitant]
  4. CLARITIN [Concomitant]
  5. SMZ-TMP [Concomitant]
  6. HYDROCODONE + ACETAMINOPHEN [Concomitant]
  7. RETIN-A [Concomitant]
  8. CLEOCIN T [Concomitant]
  9. METRONIDAZOLE [Concomitant]
  10. SKELAXIN [Concomitant]
  11. IBUPROFEN [Concomitant]
  12. VIOXX [Concomitant]
  13. AZELEX [Concomitant]
  14. CEFTIN [Concomitant]
  15. LEVAQUIN [Concomitant]
  16. DESOWEN [Concomitant]
  17. ZYRTEC [Concomitant]

REACTIONS (4)
  - ALANINE AMINOTRANSFERASE INCREASED [None]
  - ASPARTATE AMINOTRANSFERASE INCREASED [None]
  - HAEMATOMA [None]
  - HEPATITIS C [None]
